FAERS Safety Report 20042519 (Version 1)
Quarter: 2021Q4

REPORT INFORMATION
  Report Type: Other
  Country: DE (occurrence: DE)
  Receive Date: 20211108
  Receipt Date: 20211108
  Transmission Date: 20220303
  Serious: Yes (Other)
  Sender: FDA-Public Use
  Company Number: DE-MACLEODS PHARMACEUTICALS US LTD-MAC2021033212

PATIENT

DRUGS (5)
  1. QUETIAPINE [Suspect]
     Active Substance: QUETIAPINE
     Indication: Schizoaffective disorder
     Dosage: 400 MILLIGRAM, QD, 0. - 38.5. GESTATIONAL WEEK, 1ST TRIMESTER
     Route: 048
     Dates: start: 20201001, end: 20210629
  2. ABILIFY [Suspect]
     Active Substance: ARIPIPRAZOLE
     Indication: Schizoaffective disorder
     Dosage: 5 MILLIGRAM, QD, 0. - 34.5. GESTATIONAL WEEK, 1ST TRIMESTER
     Route: 048
     Dates: start: 20201001, end: 20210601
  3. LEVOTHYROXINE SODIUM [Concomitant]
     Active Substance: LEVOTHYROXINE SODIUM
     Indication: Autoimmune thyroiditis
     Dosage: 75 MICROGRAM, QD, 0. - 38.5. GESTATIONAL WEEK, 1ST TRIMESTER
     Route: 048
     Dates: start: 20201001, end: 20210629
  4. BOOSTRIX [Concomitant]
     Active Substance: TETANUS TOXOID, REDUCED DIPHTHERIA TOXOID AND ACELLULAR PERTUSSIS VACCINE, ADSORBED ANTIGENS
     Indication: Immunisation
     Dosage: UNK, 31.4. - 31.4. GESTATIONAL WEEK, 3RD TRIMESTER
     Route: 030
     Dates: start: 20210510, end: 20210510
  5. FOLIC ACID\VITAMINS [Concomitant]
     Active Substance: FOLIC ACID\VITAMINS
     Indication: Prophylaxis of neural tube defect
     Dosage: 0.8 MILLIGRAM, QD, AT 3.5. - 38.5. GESTATIONAL WEEK
     Route: 048
     Dates: start: 20201027, end: 20210629

REACTIONS (2)
  - Gestational diabetes [Recovered/Resolved]
  - Exposure during pregnancy [Unknown]
